FAERS Safety Report 11513062 (Version 1)
Quarter: 2015Q3

REPORT INFORMATION
  Report Type: Spontaneous
  Country: US (occurrence: US)
  Receive Date: 20150903
  Receipt Date: 20150903
  Transmission Date: 20151125
  Serious: No
  Sender: FDA-Public Use
  Company Number: US-ELI_LILLY_AND_COMPANY-US201209006842

PATIENT
  Age: 78 Year
  Sex: Female

DRUGS (1)
  1. CYMBALTA [Suspect]
     Active Substance: DULOXETINE HYDROCHLORIDE
     Indication: FIBROMYALGIA
     Dosage: 30 MG, QD

REACTIONS (13)
  - Injection site pain [Unknown]
  - Amnesia [Unknown]
  - Somnolence [Unknown]
  - Malaise [Unknown]
  - Disturbance in attention [Unknown]
  - Crying [Unknown]
  - Insomnia [Unknown]
  - Fear [Unknown]
  - Thinking abnormal [Unknown]
  - Constipation [Unknown]
  - Depression [Unknown]
  - Anxiety [Unknown]
  - Hypersensitivity [Unknown]

NARRATIVE: CASE EVENT DATE: 20120921
